FAERS Safety Report 18103069 (Version 1)
Quarter: 2020Q3

REPORT INFORMATION
  Report Type: Spontaneous
  Country: US (occurrence: US)
  Receive Date: 20200731
  Receipt Date: 20200731
  Transmission Date: 20201103
  Serious: Yes (Other)
  Sender: FDA-Public Use
  Company Number: None

PATIENT
  Age: 74 Year
  Sex: Male
  Weight: 37.7 kg

DRUGS (6)
  1. PIPERACILLIN/TAZOBACTAM [Concomitant]
     Active Substance: PIPERACILLIN SODIUM\TAZOBACTAM SODIUM
     Dates: start: 20200727, end: 20200731
  2. HYDROCORTISONE. [Concomitant]
     Active Substance: HYDROCORTISONE
     Dates: start: 20200730, end: 20200731
  3. MIDAZOLAM. [Concomitant]
     Active Substance: MIDAZOLAM
     Dates: start: 20200727, end: 20200731
  4. REMDESIVIR. [Suspect]
     Active Substance: REMDESIVIR
     Indication: COVID-19 PNEUMONIA
     Route: 042
     Dates: start: 20200728, end: 20200731
  5. QUETIAPINE. [Concomitant]
     Active Substance: QUETIAPINE
     Dates: start: 20200726, end: 20200731
  6. DOXYCYLINE [Concomitant]
     Active Substance: DOXYCYCLINE
     Dates: start: 20200728, end: 20200731

REACTIONS (4)
  - Hypotension [None]
  - Urine output decreased [None]
  - Alanine aminotransferase increased [None]
  - Glomerular filtration rate decreased [None]

NARRATIVE: CASE EVENT DATE: 20200731
